FAERS Safety Report 19133259 (Version 1)
Quarter: 2021Q2

REPORT INFORMATION
  Report Type: Spontaneous
  Country: US (occurrence: US)
  Receive Date: 20210413
  Receipt Date: 20210413
  Transmission Date: 20210717
  Serious: Yes (Hospitalization)
  Sender: FDA-Public Use
  Company Number: None

PATIENT
  Sex: Female

DRUGS (1)
  1. FORTEO [Suspect]
     Active Substance: TERIPARATIDE
     Indication: OSTEOPOROSIS
     Dosage: OTHER STRENGTH:600MCG/2.4 ML; QD SQ?
     Route: 058
     Dates: start: 20180724

REACTIONS (3)
  - Therapy interrupted [None]
  - Blood pressure measurement [None]
  - Diabetes mellitus [None]
